FAERS Safety Report 9010929 (Version 2)
Quarter: 2013Q1

REPORT INFORMATION
  Report Type: Report from Study
  Country: JP (occurrence: JP)
  Receive Date: 20130109
  Receipt Date: 20130208
  Transmission Date: 20140127
  Serious: Yes (Death)
  Sender: FDA-Public Use
  Company Number: JP-JNJFOC-20130102988

PATIENT
  Sex: Female

DRUGS (22)
  1. ONEDURO [Suspect]
     Indication: CANCER PAIN
     Route: 062
     Dates: start: 20121116
  2. ONEDURO [Suspect]
     Indication: CANCER PAIN
     Route: 062
     Dates: start: 20121005, end: 20121030
  3. ONEDURO [Suspect]
     Indication: CANCER PAIN
     Route: 062
     Dates: start: 20121031, end: 20121115
  4. TRAMCET [Suspect]
     Indication: PRODUCT USED FOR UNKNOWN INDICATION
     Route: 048
     Dates: start: 20121010, end: 20121010
  5. TRAMCET [Suspect]
     Indication: PRODUCT USED FOR UNKNOWN INDICATION
     Route: 048
     Dates: start: 20121011, end: 20121011
  6. TRAMCET [Suspect]
     Indication: PRODUCT USED FOR UNKNOWN INDICATION
     Route: 048
     Dates: start: 20121017, end: 20121017
  7. TRAMCET [Suspect]
     Indication: PRODUCT USED FOR UNKNOWN INDICATION
     Route: 048
     Dates: start: 20121006, end: 20121006
  8. LYRICA [Concomitant]
     Indication: CANCER PAIN
     Route: 048
     Dates: end: 20121006
  9. LYRICA [Concomitant]
     Indication: CANCER PAIN
     Route: 048
     Dates: start: 20121008, end: 20121008
  10. LYRICA [Concomitant]
     Indication: CANCER PAIN
     Route: 048
     Dates: start: 20121007, end: 20121108
  11. CALONAL [Concomitant]
     Indication: CANCER PAIN
     Route: 048
     Dates: end: 20121108
  12. DIART [Concomitant]
     Indication: CANCER PAIN
     Route: 048
     Dates: end: 20121108
  13. NEXIUM [Concomitant]
     Indication: CANCER PAIN
     Route: 048
     Dates: end: 20121108
  14. RINDERON [Concomitant]
     Indication: CANCER PAIN
     Route: 048
     Dates: start: 20121008, end: 20121108
  15. RINDERON [Concomitant]
     Indication: CANCER PAIN
     Route: 042
     Dates: start: 20121108, end: 20121127
  16. LIORESAL [Concomitant]
     Indication: CANCER PAIN
     Route: 048
     Dates: start: 20121009, end: 20121015
  17. ROPION [Concomitant]
     Indication: CANCER PAIN
     Route: 042
     Dates: start: 20121108, end: 20121121
  18. ROPION [Concomitant]
     Indication: CANCER PAIN
     Route: 042
     Dates: start: 20121122, end: 20121204
  19. XYLOCAINE [Concomitant]
     Indication: CANCER PAIN
     Route: 042
     Dates: start: 20121108, end: 20121121
  20. XYLOCAINE [Concomitant]
     Indication: CANCER PAIN
     Route: 042
     Dates: start: 20121122, end: 20121204
  21. OMEPRAL [Concomitant]
     Indication: PROPHYLAXIS
     Route: 042
     Dates: start: 20121108, end: 20121204
  22. LASIX [Concomitant]
     Indication: CANCER PAIN
     Route: 042
     Dates: start: 20121127, end: 20121204

REACTIONS (4)
  - Cervix carcinoma [Fatal]
  - Pancreatic carcinoma [Fatal]
  - Drug prescribing error [Unknown]
  - Off label use [Unknown]
